FAERS Safety Report 10191906 (Version 1)
Quarter: 2014Q2

REPORT INFORMATION
  Report Type: Spontaneous
  Country: FR (occurrence: FR)
  Receive Date: 20140523
  Receipt Date: 20140523
  Transmission Date: 20141212
  Serious: Yes (Other)
  Sender: FDA-Public Use
  Company Number: FR-GLAXOSMITHKLINE-B0995562A

PATIENT
  Age: 60 Year
  Sex: Male

DRUGS (2)
  1. VOTRIENT [Suspect]
     Indication: RENAL CELL CARCINOMA
     Dosage: 800MG PER DAY
     Route: 065
     Dates: start: 20140310, end: 20140318
  2. RISPERDAL [Concomitant]
     Route: 065

REACTIONS (2)
  - Hypertensive crisis [Recovered/Resolved]
  - Bradycardia [Recovered/Resolved]
